FAERS Safety Report 7673871-3 (Version None)
Quarter: 2011Q3

REPORT INFORMATION
  Report Type: 
  Country: None (occurrence: None)
  Receive Date: 20110810
  Receipt Date: 20110729
  Transmission Date: 20111222
  Serious: No
  Sender: FDA-Public Use
  Company Number: US-GLAXOSMITHKLINE-A0762733A

PATIENT
  Sex: Female

DRUGS (1)
  1. PAXIL [Suspect]
     Indication: ANXIETY
     Dosage: 20MG PER DAY
     Dates: start: 19990101, end: 20110701

REACTIONS (13)
  - PAIN [None]
  - PERFORMANCE STATUS DECREASED [None]
  - QUALITY OF LIFE DECREASED [None]
  - GAIT DISTURBANCE [None]
  - HEADACHE [None]
  - MATERNAL EXPOSURE DURING PREGNANCY [None]
  - VERTIGO [None]
  - WITHDRAWAL SYNDROME [None]
  - PARAESTHESIA [None]
  - NAUSEA [None]
  - PANIC REACTION [None]
  - MALAISE [None]
  - VOMITING [None]
